FAERS Safety Report 8593449-7 (Version None)
Quarter: 2012Q3

REPORT INFORMATION
  Report Type: 
  Country: None (occurrence: None)
  Receive Date: 20120814
  Receipt Date: 20120807
  Transmission Date: 20120928
  Serious: Yes (Other)
  Sender: FDA-Public Use
  Company Number: US-ALEXION-A201201463

PATIENT
  Sex: Female
  Weight: 79 kg

DRUGS (14)
  1. ACETAMINOPHEN [Concomitant]
     Indication: PAIN
     Dosage: 650 MG, Q4HR PRN
  2. XANAX [Concomitant]
     Dosage: 0.25 MG, QD
     Route: 048
  3. EXJADE [Concomitant]
     Dosage: 1000 MG, QD
     Route: 048
  4. COUMADIN [Concomitant]
     Dosage: 9 MG, QD
  5. SOLIRIS [Suspect]
     Dosage: 900 MG, Q2W
     Route: 042
     Dates: start: 20120101
  6. ZETIA [Concomitant]
     Dosage: 10 MG, QD
     Route: 048
  7. NEULASTA [Concomitant]
     Dosage: 6 MG, Q2W
     Route: 058
  8. BENADRYL [Concomitant]
     Indication: HYPERSENSITIVITY
     Dosage: 25 MG, Q6HR PRN
     Route: 048
  9. PROTONIX [Concomitant]
     Dosage: 40 MG, QD
     Route: 048
  10. MYLANTA [Concomitant]
     Indication: ABDOMINAL DISCOMFORT
     Dosage: 10 ML, Q6 HR PRN
     Route: 048
  11. POTASSIUM CHLORIDE [Concomitant]
     Dosage: 10 MG, QID
     Route: 048
  12. PROZAC [Concomitant]
     Dosage: 20 MG, QD
     Route: 048
  13. SOLIRIS [Suspect]
     Indication: PAROXYSMAL NOCTURNAL HAEMOGLOBINURIA
     Dosage: 600 MG, QW
     Route: 042
     Dates: start: 20111229
  14. MILK OF MAGNESIA TAB [Concomitant]
     Indication: CONSTIPATION
     Dosage: 30 ML, QD PRN
     Route: 048

REACTIONS (5)
  - HAEMOGLOBIN DECREASED [None]
  - JOINT SWELLING [None]
  - ARTHRALGIA [None]
  - FATIGUE [None]
  - LIGAMENT INJURY [None]
